FAERS Safety Report 21975856 (Version 2)
Quarter: 2023Q2

REPORT INFORMATION
  Report Type: Spontaneous
  Country: US (occurrence: US)
  Receive Date: 20230210
  Receipt Date: 20230411
  Transmission Date: 20230721
  Serious: Yes (Other)
  Sender: FDA-Public Use
  Company Number: US-JNJFOC-20230202475

PATIENT
  Age: 58 Year
  Sex: Female
  Weight: 89.438 kg

DRUGS (6)
  1. STELARA [Suspect]
     Active Substance: USTEKINUMAB
     Indication: Crohn^s disease
     Route: 058
     Dates: start: 202110
  2. STELARA [Suspect]
     Active Substance: USTEKINUMAB
     Route: 058
  3. NOVOLOG [Concomitant]
     Active Substance: INSULIN ASPART
  4. CITALOPRAM [Concomitant]
     Active Substance: CITALOPRAM HYDROBROMIDE
  5. LISINOPRIL [Concomitant]
     Active Substance: LISINOPRIL
  6. METOPROLOL [Concomitant]
     Active Substance: METOPROLOL

REACTIONS (3)
  - Crohn^s disease [Recovering/Resolving]
  - Product dose omission issue [Unknown]
  - Off label use [Unknown]

NARRATIVE: CASE EVENT DATE: 20230101
